FAERS Safety Report 9919897 (Version 3)
Quarter: 2014Q1

REPORT INFORMATION
  Report Type: Report from Study
  Country: DE (occurrence: DE)
  Receive Date: 20140224
  Receipt Date: 20140320
  Transmission Date: 20141002
  Serious: Yes (Death, Hospitalization)
  Sender: FDA-Public Use
  Company Number: DE-PFIZER INC-2014050197

PATIENT
  Age: 56 Year
  Sex: Female
  Weight: 46 kg

DRUGS (13)
  1. TOFACITINIB CITRATE [Suspect]
     Indication: RHEUMATOID ARTHRITIS
     Dosage: 5 MG, 2X/DAY
     Route: 048
     Dates: start: 20080814
  2. SPIRIVA [Concomitant]
     Indication: CHRONIC OBSTRUCTIVE PULMONARY DISEASE
     Dosage: 1 DF, 1X/DAY, 1-0-0
     Dates: start: 20100222
  3. SALBUHEXAL [Concomitant]
     Indication: CHRONIC OBSTRUCTIVE PULMONARY DISEASE
     Dosage: UNK, AS NEEDED
     Dates: start: 20100222
  4. MERIGEST [Concomitant]
     Indication: OESTROGEN THERAPY
     Dosage: 1 DF (2/0.7 MG), 1X/DAY, 1-0-0
     Dates: start: 2005
  5. NEBIVOLOL [Concomitant]
     Indication: CORONARY ARTERY DISEASE
     Dosage: 5 MG, 2X/DAY
     Dates: start: 2011
  6. PREDNISOLON [Concomitant]
     Indication: RHEUMATOID ARTHRITIS
     Dosage: 2.5 MG, DAILY
     Dates: start: 20120627
  7. SIMVASTATIN [Concomitant]
     Indication: CORONARY ARTERY DISEASE
     Dosage: 80 MG, DAILY
     Dates: start: 20120627
  8. FORMOLICH [Concomitant]
     Indication: CHRONIC OBSTRUCTIVE PULMONARY DISEASE
     Dosage: 1 DF, 2X/DAY
     Dates: start: 20130314
  9. RAMIPRIL PLUS [Concomitant]
     Indication: CORONARY ARTERY DISEASE
     Dosage: 2.5/12.5 MG, DAILY
     Dates: start: 20130923
  10. SPIRONOLACTONE [Concomitant]
     Indication: CORONARY ARTERY DISEASE
     Dosage: 50 MG, (1/2-0-0)
     Dates: start: 20130923
  11. TIMO-VISION [Concomitant]
     Indication: GLAUCOMA
     Dosage: 1 DF, 1X/DAY (1-0-0)
     Dates: start: 20131202
  12. ASS [Concomitant]
     Indication: CORONARY ARTERY DISEASE
     Dosage: 100 MG, 1X/DAY (1-0-0)
     Dates: start: 201310
  13. CALCILAC D3 [Concomitant]
     Dosage: UNK
     Dates: start: 20080619

REACTIONS (5)
  - Multi-organ failure [Fatal]
  - Respiratory failure [Fatal]
  - Respiratory acidosis [Fatal]
  - Sepsis [Fatal]
  - Pneumonia [Fatal]
